FAERS Safety Report 25459316 (Version 1)
Quarter: 2025Q2

REPORT INFORMATION
  Report Type: Spontaneous
  Country: US (occurrence: US)
  Receive Date: 20250620
  Receipt Date: 20250620
  Transmission Date: 20250717
  Serious: Yes (Death, Hospitalization, Other)
  Sender: AMGEN
  Company Number: US-AMGEN-USASP2025118655

PATIENT

DRUGS (2)
  1. PREDNISONE [Suspect]
     Active Substance: PREDNISONE
     Indication: Central nervous system vasculitis
     Route: 065
  2. RITUXIMAB [Suspect]
     Active Substance: RITUXIMAB
     Indication: Central nervous system vasculitis
     Route: 065

REACTIONS (9)
  - Death [Fatal]
  - Central nervous system vasculitis [Unknown]
  - Diabetes mellitus [Unknown]
  - Infection [Unknown]
  - Gastrointestinal haemorrhage [Unknown]
  - Osteonecrosis [Unknown]
  - Hepatotoxicity [Unknown]
  - Drug ineffective for unapproved indication [Unknown]
  - Off label use [Unknown]
